FAERS Safety Report 9870479 (Version 4)
Quarter: 2014Q1

REPORT INFORMATION
  Report Type: Spontaneous
  Country: JP (occurrence: JP)
  Receive Date: 20140205
  Receipt Date: 20140306
  Transmission Date: 20141002
  Serious: Yes (Other)
  Sender: FDA-Public Use
  Company Number: JP-OTSUKA-JP-2014-10471

PATIENT
  Sex: Female

DRUGS (1)
  1. SAMSCA [Suspect]
     Indication: ASCITES
     Dosage: 7.5 MG MILLIGRAM(S), DAILY DOSE
     Route: 048
     Dates: start: 20131211

REACTIONS (1)
  - Platelet count decreased [Recovering/Resolving]
